FAERS Safety Report 10943273 (Version 3)
Quarter: 2024Q2

REPORT INFORMATION
  Report Type: Spontaneous
  Country: US (occurrence: US)
  Receive Date: 20150322
  Receipt Date: 20240523
  Transmission Date: 20240716
  Serious: No
  Sender: FDA-Public Use
  Company Number: US-JNJFOC-20141102403

PATIENT
  Age: 10 Year
  Sex: Male

DRUGS (1)
  1. RISPERDAL [Suspect]
     Active Substance: RISPERIDONE
     Indication: Depression
     Route: 048
     Dates: start: 19970220, end: 2001

REACTIONS (4)
  - Emotional disorder [Unknown]
  - Gynaecomastia [Unknown]
  - Weight increased [Unknown]
  - Off label use [Unknown]

NARRATIVE: CASE EVENT DATE: 19970220
